FAERS Safety Report 8531038 (Version 2)
Quarter: 2012Q4

REPORT INFORMATION
  Report Type: 
  Country: US (occurrence: US)
  Receive Date: 20120426
  Receipt Date: 20120913
  Transmission Date: 20130627
  Serious: Yes (Hospitalization, Other)
  Sender: FDA-Public Use
  Company Number: US-BAYER-2012-039356

PATIENT
  Age: 14 Year
  Sex: Female

DRUGS (2)
  1. YAZ [Suspect]
     Indication: CONTRACEPTION
     Dosage: UNK
     Dates: start: 200904, end: 201002
  2. YAZ [Suspect]
     Indication: PREMENSTRUAL SYNDROME

REACTIONS (14)
  - Cerebrovascular accident [None]
  - Injury [None]
  - Cardiovascular disorder [None]
  - Pain [None]
  - Heart rate increased [None]
  - Loss of consciousness [None]
  - Abdominal pain [None]
  - Menorrhagia [None]
  - Migraine [None]
  - Vomiting [None]
  - Muscle spasms [None]
  - Malaise [None]
  - Mental disorder [None]
  - Pain [None]
